FAERS Safety Report 9153594 (Version 1)
Quarter: 2013Q1

REPORT INFORMATION
  Report Type: Spontaneous
  Country: BR (occurrence: BR)
  Receive Date: 20130311
  Receipt Date: 20130311
  Transmission Date: 20140127
  Serious: Yes (Other)
  Sender: FDA-Public Use
  Company Number: PHHY2013BR005631

PATIENT
  Age: 48 Year
  Sex: Male

DRUGS (3)
  1. DIOVAN AMLO FIX [Suspect]
     Indication: HYPERTENSION
     Dosage: 1 DF (320MG VALS/ 5MG AMLO), DAILY
     Route: 048
     Dates: start: 201004, end: 20130111
  2. HIGROTON [Suspect]
     Indication: HYPERTENSION
     Dosage: 1 DF (25MG), DAILY
     Route: 048
     Dates: start: 201005, end: 20130111
  3. FLUOXETINE [Concomitant]
     Indication: DEPRESSION
     Dosage: 1 DF, BID (IN THE MORNING AND AT NIGHT)

REACTIONS (3)
  - Blood pressure inadequately controlled [Not Recovered/Not Resolved]
  - Depression [Not Recovered/Not Resolved]
  - Concomitant disease aggravated [Not Recovered/Not Resolved]
